FAERS Safety Report 5105466-X (Version None)
Quarter: 2006Q3

REPORT INFORMATION
  Report Type: 
  Country: None (occurrence: None)
  Receive Date: 20060915
  Receipt Date: 20060727
  Transmission Date: 20061208
  Serious: No
  Sender: FDA-Public Use
  Company Number: US-GLAXOSMITHKLINE-A0613777A

PATIENT
  Age: 46 Year
  Sex: Male

DRUGS (4)
  1. AVANDARYL [Suspect]
     Route: 048
  2. ASPIRIN [Concomitant]
  3. VITAMINS [Concomitant]
  4. GLUCOMIDE [Concomitant]

REACTIONS (3)
  - BLOOD GLUCOSE INCREASED [None]
  - BONE PAIN [None]
  - VISION BLURRED [None]
